FAERS Safety Report 20802107 (Version 1)
Quarter: 2022Q2

REPORT INFORMATION
  Report Type: Spontaneous
  Country: US (occurrence: None)
  Receive Date: 20220506
  Receipt Date: 20220506
  Transmission Date: 20220721
  Serious: Yes (Hospitalization)
  Sender: FDA-Public Use
  Company Number: None

PATIENT
  Age: 85 Year
  Sex: Female

DRUGS (1)
  1. TERIPARATIDE [Suspect]
     Active Substance: TERIPARATIDE
     Dosage: FREQUENCY : DAILY;?
     Route: 058
     Dates: start: 202204

REACTIONS (3)
  - Palmar erythema [None]
  - Skin exfoliation [None]
  - Therapy cessation [None]

NARRATIVE: CASE EVENT DATE: 20220414
